FAERS Safety Report 22831960 (Version 2)
Quarter: 2023Q4

REPORT INFORMATION
  Report Type: Report from Study
  Country: DE (occurrence: US)
  Receive Date: 20230817
  Receipt Date: 20231113
  Transmission Date: 20240110
  Serious: Yes (Hospitalization)
  Sender: FDA-Public Use
  Company Number: DE-BAYER-2023A114360

PATIENT
  Age: 68 Year
  Sex: Male

DRUGS (1)
  1. BETASERON [Suspect]
     Active Substance: INTERFERON BETA-1B
     Indication: Multiple sclerosis
     Dosage: 0.3 MG, QOD
     Route: 058

REACTIONS (5)
  - Adverse drug reaction [None]
  - Muscular weakness [None]
  - Fall [None]
  - Cardiac failure congestive [None]
  - Renal impairment [None]

NARRATIVE: CASE EVENT DATE: 20221101
